FAERS Safety Report 11196084 (Version 1)
Quarter: 2015Q2

REPORT INFORMATION
  Report Type: Spontaneous
  Country: ES (occurrence: ES)
  Receive Date: 20150617
  Receipt Date: 20150617
  Transmission Date: 20150821
  Serious: Yes (Hospitalization, Other)
  Sender: FDA-Public Use
  Company Number: ES-TEVA-570152ISR

PATIENT
  Age: 22 Year
  Sex: Male

DRUGS (3)
  1. IBUPROFEN. [Suspect]
     Active Substance: IBUPROFEN
     Dosage: REACHING A TOTAL TAKE 1200 MG
     Route: 065
  2. ALGIDOL [Concomitant]
     Active Substance: ACETAMINOPHEN\ASCORBIC ACID\CODEINE
     Indication: PYREXIA
     Dosage: PARACETAMOL/CODEINE/ASCORBIC-ACID:650MG/10MG/500MG
     Route: 048
  3. PARACETAMOL [Concomitant]
     Active Substance: ACETAMINOPHEN
     Route: 048

REACTIONS (1)
  - Drug reaction with eosinophilia and systemic symptoms [Recovering/Resolving]
